FAERS Safety Report 6544193-9 (Version None)
Quarter: 2010Q1

REPORT INFORMATION
  Report Type: 
  Country: None (occurrence: None)
  Receive Date: 20100119
  Receipt Date: 20100119
  Transmission Date: 20100710
  Serious: Yes (Life-Threatening, Hospitalization)
  Sender: FDA-Public Use
  Company Number: None

PATIENT
  Age: 50 Year
  Sex: Female
  Weight: 58.9676 kg

DRUGS (1)
  1. MOTRIN IB [Suspect]
     Indication: DRUG USE FOR UNKNOWN INDICATION
     Dosage: 800MG ONCE PO
     Route: 048
     Dates: start: 20100114, end: 20100114

REACTIONS (15)
  - ANAPHYLACTIC SHOCK [None]
  - CONFUSIONAL STATE [None]
  - DIZZINESS [None]
  - DYSPNOEA [None]
  - EAR PAIN [None]
  - EAR PRURITUS [None]
  - EYE SWELLING [None]
  - GINGIVAL PAIN [None]
  - HEADACHE [None]
  - NAUSEA [None]
  - PARAESTHESIA ORAL [None]
  - PHARYNGEAL OEDEMA [None]
  - SWELLING FACE [None]
  - SYNCOPE [None]
  - URTICARIA [None]
